FAERS Safety Report 16891365 (Version 1)
Quarter: 2019Q4

REPORT INFORMATION
  Report Type: Spontaneous
  Country: US (occurrence: US)
  Receive Date: 20191007
  Receipt Date: 20191007
  Transmission Date: 20200122
  Serious: Yes (Other)
  Sender: FDA-Public Use
  Company Number: US-ALEMBIC PHARMACUETICALS LIMITED-2019SCAL000737

PATIENT

DRUGS (3)
  1. VALPROIC ACID. [Concomitant]
     Active Substance: VALPROIC ACID
     Indication: BIPOLAR DISORDER
     Dosage: UNK
     Route: 065
  2. DEPAKOTE [Concomitant]
     Active Substance: DIVALPROEX SODIUM
     Indication: BIPOLAR DISORDER
     Dosage: UNK
     Route: 065
  3. LITHIUM CARBONATE. [Suspect]
     Active Substance: LITHIUM CARBONATE
     Indication: BIPOLAR DISORDER
     Dosage: 900 MILLIGRAM, DAILY AT NIGHT
     Route: 065

REACTIONS (12)
  - Proteinuria [Unknown]
  - Chronic kidney disease [Recovering/Resolving]
  - Hypernatraemia [Unknown]
  - Thyroid mass [Unknown]
  - Hyperparathyroidism [Recovering/Resolving]
  - Renal tubular injury [Unknown]
  - Polyuria [Recovered/Resolved]
  - Polydipsia [Recovered/Resolved]
  - Nephrogenic diabetes insipidus [Unknown]
  - Glomerular filtration rate decreased [Unknown]
  - Hypercalcaemia [Recovered/Resolved]
  - Blood creatinine increased [Unknown]
